FAERS Safety Report 9112172 (Version 1)
Quarter: 2013Q1

REPORT INFORMATION
  Report Type: Spontaneous
  Country: US (occurrence: US)
  Receive Date: 20130219
  Receipt Date: 20130219
  Transmission Date: 20140127
  Serious: Yes (Other)
  Sender: FDA-Public Use
  Company Number: US-BRISTOL-MYERS SQUIBB COMPANY-16656258

PATIENT
  Age: 53 Year
  Sex: Female

DRUGS (12)
  1. ORENCIA [Suspect]
     Indication: RHEUMATOID ARTHRITIS
     Dosage: LAST INF ON 14MAY2012
     Route: 042
     Dates: start: 20120319, end: 20120514
  2. AMLODIPINE [Concomitant]
  3. ACETYLSALICYLIC ACID [Concomitant]
  4. ATORVASTATIN [Concomitant]
  5. CHOLECALCIFEROL [Concomitant]
  6. FOLIC ACID [Concomitant]
  7. FASLODEX [Concomitant]
  8. NOVOLOG [Concomitant]
  9. METHOTREXATE [Concomitant]
  10. PREDNISONE [Concomitant]
  11. EFFEXOR [Concomitant]
  12. COQ10 [Concomitant]

REACTIONS (3)
  - Breast cancer recurrent [Unknown]
  - Chest pain [Unknown]
  - Rheumatoid arthritis [Unknown]
